FAERS Safety Report 4291064-7 (Version None)
Quarter: 2004Q1

REPORT INFORMATION
  Report Type: 
  Country: None (occurrence: None)
  Receive Date: 20040211
  Receipt Date: 20031103
  Transmission Date: 20041129
  Serious: No
  Sender: FDA-Public Use
  Company Number: US-GLAXOSMITHKLINE-A0432632A

PATIENT
  Age: 34 Year
  Sex: Female

DRUGS (6)
  1. PAXIL [Suspect]
     Dosage: 20MG PER DAY
     Route: 048
     Dates: start: 20011001, end: 20031023
  2. ALPRAZOLAM [Concomitant]
     Dosage: .5MG AS REQUIRED
     Route: 048
  3. SINGULAIR [Concomitant]
  4. ADVAIR DISKUS 100/50 [Concomitant]
  5. ALBUTEROL [Concomitant]
  6. ORTHO CYCLEN-28 [Concomitant]

REACTIONS (3)
  - DIARRHOEA [None]
  - DRUG WITHDRAWAL SYNDROME [None]
  - NAUSEA [None]
